FAERS Safety Report 16735395 (Version 1)
Quarter: 2019Q3

REPORT INFORMATION
  Report Type: Spontaneous
  Country: HR (occurrence: HR)
  Receive Date: 20190823
  Receipt Date: 20190823
  Transmission Date: 20191005
  Serious: Yes (Other)
  Sender: FDA-Public Use
  Company Number: HR-PFIZER INC-2019358434

PATIENT
  Age: 27 Year
  Sex: Female
  Weight: 70 kg

DRUGS (7)
  1. XANAX [Suspect]
     Active Substance: ALPRAZOLAM
     Dosage: 30 MG, UNK
     Route: 048
     Dates: start: 20190603, end: 20190603
  2. LEPONEX [Suspect]
     Active Substance: CLOZAPINE
     Dosage: 1250 MG, UNK
     Route: 048
     Dates: start: 20190603, end: 20190603
  3. LACIPIL [Suspect]
     Active Substance: LACIDIPINE
     Dosage: 112 G, UNK
     Route: 048
     Dates: start: 20190603, end: 20190603
  4. ELICEA [Suspect]
     Active Substance: ESCITALOPRAM OXALATE
     Dosage: 280 MG, UNK
     Route: 048
     Dates: start: 20190603, end: 20190603
  5. BYOL COR [Suspect]
     Active Substance: BISOPROLOL FUMARATE
     Dosage: 75 MG, UNK
     Route: 048
     Dates: start: 20190603, end: 20190603
  6. ZOLOFT [Suspect]
     Active Substance: SERTRALINE HYDROCHLORIDE
     Dosage: 2800 MG, UNK
     Route: 048
     Dates: start: 20190603, end: 20190603
  7. SIOFOR [Suspect]
     Active Substance: METFORMIN HYDROCHLORIDE
     Dosage: 120 G, UNK
     Route: 048
     Dates: start: 20190603, end: 20190603

REACTIONS (3)
  - Suicide attempt [Unknown]
  - Hypotension [Unknown]
  - Intentional overdose [Unknown]

NARRATIVE: CASE EVENT DATE: 20190603
